FAERS Safety Report 7750959-X (Version None)
Quarter: 2011Q3

REPORT INFORMATION
  Report Type: 
  Country: None (occurrence: None)
  Receive Date: 20110914
  Receipt Date: 20110909
  Transmission Date: 20111222
  Serious: Yes (Hospitalization)
  Sender: FDA-Public Use
  Company Number: US-ABBOTT-11P-163-0853817-00

PATIENT
  Age: 71 Year
  Sex: Female

DRUGS (6)
  1. CALCIUM SUPPLEMENTS [Concomitant]
     Indication: PRODUCT USED FOR UNKNOWN INDICATION
  2. VITAMIN TAB [Concomitant]
     Indication: PRODUCT USED FOR UNKNOWN INDICATION
  3. HUMIRA [Suspect]
  4. SYNTHROID [Concomitant]
     Indication: HYPOTHYROIDISM
  5. MAXZIDE [Concomitant]
     Indication: PRODUCT USED FOR UNKNOWN INDICATION
  6. HUMIRA [Suspect]
     Indication: COLITIS ULCERATIVE
     Dosage: 1 IN 2 WEEKS, INTERRUPTED
     Dates: start: 20080501, end: 20110201

REACTIONS (2)
  - UNEVALUABLE EVENT [None]
  - PERITONEAL DISORDER [None]
